FAERS Safety Report 9081508 (Version 1)
Quarter: 2013Q1

REPORT INFORMATION
  Report Type: Report from Study
  Country: US (occurrence: US)
  Receive Date: 20130130
  Receipt Date: 20130130
  Transmission Date: 20140127
  Serious: No
  Sender: FDA-Public Use
  Company Number: US-ABBOTT-12P-163-0970875-00

PATIENT
  Age: 61 Year
  Sex: Female

DRUGS (12)
  1. HUMIRA [Suspect]
     Indication: RHEUMATOID ARTHRITIS
     Dates: start: 20120723
  2. CYMBALTA [Concomitant]
     Indication: PAIN
     Route: 048
  3. PREDNISONE [Concomitant]
     Indication: SWELLING
     Route: 048
  4. GABAPENTIN [Concomitant]
     Indication: RHEUMATOID ARTHRITIS
     Route: 048
  5. RAMIPRIL [Concomitant]
     Indication: HYPERTENSION
     Dosage: AT BEDTIME
  6. TRIAMTERENE [Concomitant]
     Indication: HYPERTENSION
     Dosage: 37.5/25MG ONE DAILY
     Route: 048
  7. METFORMIN [Concomitant]
     Indication: DIABETES MELLITUS
     Route: 048
  8. VITAMIN D [Concomitant]
     Indication: VITAMIN D DEFICIENCY
     Dosage: WEEKLY
     Route: 048
  9. VITAMIN B12 [Concomitant]
     Indication: PERNICIOUS ANAEMIA
     Route: 050
  10. SIMVASTATIN [Concomitant]
     Indication: BLOOD CHOLESTEROL INCREASED
     Dosage: 20MG DAILY
     Route: 048
  11. SYNTHROID [Concomitant]
     Indication: HYPOTHYROIDISM
     Dosage: 112MCG DAILY
     Route: 048
  12. LIDODERM [Concomitant]
     Indication: PAIN
     Dosage: PATCH; AT BEDTIME

REACTIONS (7)
  - Device malfunction [Unknown]
  - Incorrect dose administered [Unknown]
  - Needle issue [Unknown]
  - Asthenia [Not Recovered/Not Resolved]
  - Drug ineffective [Not Recovered/Not Resolved]
  - Rash papular [Not Recovered/Not Resolved]
  - Miliaria [Not Recovered/Not Resolved]
